FAERS Safety Report 11159543 (Version 5)
Quarter: 2015Q3

REPORT INFORMATION
  Report Type: Spontaneous
  Country: FR (occurrence: FR)
  Receive Date: 20150603
  Receipt Date: 20150803
  Transmission Date: 20151125
  Serious: Yes (Hospitalization, Other)
  Sender: FDA-Public Use
  Company Number: FR-PFIZER INC-2015180837

PATIENT
  Age: 57 Year
  Sex: Female

DRUGS (21)
  1. TAZOCILLINE [Suspect]
     Active Substance: PIPERACILLIN SODIUM\TAZOBACTAM SODIUM
     Indication: SURGERY
     Dosage: 1 DF, 4X/DAY
     Route: 042
     Dates: start: 20150511, end: 20150528
  2. CLAVENTIN /00973701/ [Suspect]
     Active Substance: CLAVULANATE POTASSIUM\TICARCILLIN DISODIUM
     Indication: PSEUDOMONAS INFECTION
  3. TAHOR [Concomitant]
     Active Substance: ATORVASTATIN CALCIUM
     Dosage: UNK
  4. HYPNOVEL [Concomitant]
     Active Substance: MIDAZOLAM\MIDAZOLAM HYDROCHLORIDE
     Dosage: UNK
     Dates: start: 20150511, end: 20150514
  5. CLAVENTIN /00973701/ [Suspect]
     Active Substance: CLAVULANATE POTASSIUM\TICARCILLIN DISODIUM
     Indication: STAPHYLOCOCCAL INFECTION
     Dosage: UNK
     Dates: start: 20150529, end: 20150609
  6. NEURONTIN [Concomitant]
     Active Substance: GABAPENTIN
     Dosage: 300 MG, 2X/DAY
     Dates: start: 20150516
  7. COVERAM [Concomitant]
     Active Substance: AMLODIPINE\PERINDOPRIL
     Dosage: UNK
  8. CATAPRESSAN [Concomitant]
     Active Substance: CLONIDINE
     Dosage: UNK
     Dates: start: 20150515
  9. AUGMENTIN [Suspect]
     Active Substance: AMOXICILLIN\CLAVULANATE POTASSIUM
     Indication: SURGERY
     Dosage: ONE SINGLE DOSE
     Dates: start: 20150511, end: 20150511
  10. ORGARAN [Concomitant]
     Active Substance: DANAPAROID SODIUM
     Dosage: UNK
     Dates: start: 20150511
  11. INEXIUM [Concomitant]
     Active Substance: ESOMEPRAZOLE
     Dosage: UNK
     Dates: start: 20150511
  12. LYRICA [Concomitant]
     Active Substance: PREGABALIN
     Dosage: UNK
  13. HUMALOG [Concomitant]
     Active Substance: INSULIN LISPRO
     Dosage: UNK
  14. DALACINE [Suspect]
     Active Substance: CLINDAMYCIN HYDROCHLORIDE
     Indication: SURGERY
     Dosage: ONE SINGLE DOSE
     Dates: start: 20150511, end: 20150511
  15. ZYVOXID [Suspect]
     Active Substance: LINEZOLID
     Indication: SURGERY
     Dosage: 600 MG, 2X/DAY
     Route: 042
     Dates: start: 20150511, end: 20150526
  16. AMIKACINE MYLAN [Suspect]
     Active Substance: AMIKACIN
     Indication: SURGERY
     Dosage: 2500 MG, DAILY
     Route: 042
     Dates: start: 20150511, end: 20150513
  17. BISOCE [Concomitant]
     Active Substance: BISOPROLOL
     Dosage: UNK
  18. LANTUS [Concomitant]
     Active Substance: INSULIN GLARGINE
     Dosage: UNK
  19. DOLIPRANE [Concomitant]
     Active Substance: ACETAMINOPHEN
     Dosage: UNK
     Dates: start: 20150511
  20. CONTRAMAL [Concomitant]
     Active Substance: TRAMADOL HYDROCHLORIDE
     Dosage: UNK
  21. TIORFAN [Concomitant]
     Active Substance: RACECADOTRIL
     Dosage: UNK
     Dates: start: 20150511

REACTIONS (6)
  - Rash [Recovered/Resolved]
  - Neutrophil count increased [Recovered/Resolved]
  - Hepatocellular injury [Recovered/Resolved]
  - Pyrexia [Recovered/Resolved]
  - Purpura [Recovered/Resolved]
  - Acute generalised exanthematous pustulosis [Recovered/Resolved]

NARRATIVE: CASE EVENT DATE: 2015
